FAERS Safety Report 6494769-2 (Version None)
Quarter: 2009Q4

REPORT INFORMATION
  Report Type: 
  Country: None (occurrence: None)
  Receive Date: 20091214
  Receipt Date: 20090324
  Transmission Date: 20100525
  Serious: No
  Sender: FDA-Public Use
  Company Number: US-BRISTOL-MYERS SQUIBB COMPANY-14557862

PATIENT
  Age: 62 Year
  Sex: Male
  Weight: 113 kg

DRUGS (10)
  1. ABILIFY [Suspect]
     Indication: BIPOLAR DISORDER
     Dates: start: 20090311
  2. ZOLOFT [Suspect]
     Indication: BIPOLAR DISORDER
  3. METOPROLOL [Concomitant]
  4. METFORMIN [Concomitant]
  5. ALTACE [Concomitant]
  6. ACTOS [Concomitant]
  7. ASPIRIN [Concomitant]
  8. NOVOLIN [Concomitant]
  9. ZOCOR [Concomitant]
  10. AVODART [Concomitant]

REACTIONS (3)
  - AMNESIA [None]
  - BLOOD PRESSURE INCREASED [None]
  - PRESSURE OF SPEECH [None]
